FAERS Safety Report 8092267-6 (Version None)
Quarter: 2012Q1

REPORT INFORMATION
  Report Type: 
  Country: None (occurrence: None)
  Receive Date: 20120129
  Receipt Date: 20111122
  Transmission Date: 20120608
  Serious: No
  Sender: FDA-Public Use
  Company Number: US-ABBOTT-11P-163-0876934-00

PATIENT
  Age: 30 Year
  Sex: Male

DRUGS (1)
  1. HUMIRA [Suspect]
     Indication: PSORIASIS
     Dates: start: 20110930

REACTIONS (5)
  - INJECTION SITE PAIN [None]
  - NASOPHARYNGITIS [None]
  - SEASONAL ALLERGY [None]
  - LACRIMATION INCREASED [None]
  - RHINORRHOEA [None]
